FAERS Safety Report 6891749-X (Version None)
Quarter: 2010Q3

REPORT INFORMATION
  Report Type: 
  Country: None (occurrence: None)
  Receive Date: 20100731
  Receipt Date: 20071001
  Transmission Date: 20110219
  Serious: No
  Sender: FDA-Public Use
  Company Number: US-PFIZER INC-2007082265

PATIENT
  Sex: Female
  Weight: 79.38 kg

DRUGS (4)
  1. NORVASC [Suspect]
  2. MELOXICAM [Concomitant]
  3. ATENOLOL [Concomitant]
  4. ACETYLSALICYLIC ACID SRT [Concomitant]

REACTIONS (1)
  - TINNITUS [None]
